FAERS Safety Report 7900391-0 (Version None)
Quarter: 2011Q4

REPORT INFORMATION
  Report Type: 
  Country: None (occurrence: None)
  Receive Date: 20111108
  Receipt Date: 20111104
  Transmission Date: 20120403
  Serious: No
  Sender: FDA-Public Use
  Company Number: US-PFIZER INC-2011270888

PATIENT
  Sex: Female
  Weight: 70.295 kg

DRUGS (2)
  1. WELLBUTRIN [Concomitant]
     Indication: ANXIETY
     Dosage: UNK
  2. NEURONTIN [Suspect]
     Indication: HOT FLUSH
     Dosage: 300 MG, 2X/DAY
     Route: 048
     Dates: start: 20010101

REACTIONS (3)
  - COUGH [None]
  - OROPHARYNGEAL PAIN [None]
  - NASOPHARYNGITIS [None]
